FAERS Safety Report 8533063-2 (Version None)
Quarter: 2012Q3

REPORT INFORMATION
  Report Type: 
  Country: None (occurrence: None)
  Receive Date: 20120724
  Receipt Date: 20120709
  Transmission Date: 20120928
  Serious: No
  Sender: FDA-Public Use
  Company Number: US-B.I. PHARMACEUTICALS,INC./RIDGEFIELD-2012-BP-15307BP

PATIENT
  Sex: Female

DRUGS (4)
  1. ZANTAC 150 [Suspect]
     Indication: DYSPEPSIA
     Dosage: 450 MG
     Route: 048
  2. ACETAMINOPHEN [Concomitant]
  3. VYVANSE [Concomitant]
     Indication: ATTENTION DEFICIT/HYPERACTIVITY DISORDER
     Dosage: 70 MG
     Route: 048
  4. CLARITIN [Concomitant]
     Indication: SINUS DISORDER
     Route: 048

REACTIONS (1)
  - DRUG SCREEN POSITIVE [None]
